FAERS Safety Report 9934123 (Version 1)
Quarter: 2014Q1

REPORT INFORMATION
  Report Type: Spontaneous
  Country: US (occurrence: US)
  Receive Date: 20140228
  Receipt Date: 20140228
  Transmission Date: 20141002
  Serious: Yes (Other)
  Sender: FDA-Public Use
  Company Number: US-BAYER-2014-028352

PATIENT
  Age: 42 Year
  Sex: Female

DRUGS (2)
  1. MIRENA [Suspect]
     Indication: CONTRACEPTION
     Dosage: UNK
     Route: 015
  2. MIRENA [Suspect]
     Indication: CONTRACEPTION
     Dosage: UNK
     Route: 015
     Dates: start: 201302

REACTIONS (7)
  - Genital haemorrhage [Recovered/Resolved]
  - Amenorrhoea [None]
  - Procedural pain [Recovered/Resolved]
  - Amenorrhoea [None]
  - Sensation of heaviness [None]
  - Abdominal pain lower [None]
  - Device issue [Not Recovered/Not Resolved]
